FAERS Safety Report 11184077 (Version 1)
Quarter: 2015Q2

REPORT INFORMATION
  Report Type: Spontaneous
  Country: DE (occurrence: None)
  Receive Date: 20150610
  Receipt Date: 20150610
  Transmission Date: 20150821
  Serious: Yes (Other)
  Sender: FDA-Public Use
  Company Number: FK201502658

PATIENT
  Age: 58 Year
  Sex: Male

DRUGS (2)
  1. DAUNORUBICIN (DAUNORUBICIN) [Concomitant]
     Active Substance: DAUNORUBICIN
  2. CYTARABINE. [Suspect]
     Active Substance: CYTARABINE
     Indication: ACUTE MYELOID LEUKAEMIA
     Route: 042

REACTIONS (2)
  - Stress cardiomyopathy [None]
  - Cardiogenic shock [None]
